FAERS Safety Report 14901298 (Version 2)
Quarter: 2018Q2

REPORT INFORMATION
  Report Type: Spontaneous
  Country: US (occurrence: US)
  Receive Date: 20180516
  Receipt Date: 20180605
  Transmission Date: 20180711
  Serious: Yes (Other)
  Sender: FDA-Public Use
  Company Number: US-AKORN PHARMACEUTICALS-2018AKN00650

PATIENT
  Age: 2 Year
  Sex: Male
  Weight: 14.1 kg

DRUGS (1)
  1. MYORISAN [Suspect]
     Active Substance: ISOTRETINOIN
     Indication: ACNE INFANTILE
     Dosage: 10 MG, 1X/DAY
     Route: 048
     Dates: start: 20180312, end: 20180404

REACTIONS (4)
  - Abnormal behaviour [Recovered/Resolved]
  - Sleep disorder [Recovered/Resolved]
  - Irritability [Recovered/Resolved]
  - Drug administered to patient of inappropriate age [Recovered/Resolved]

NARRATIVE: CASE EVENT DATE: 2018
